FAERS Safety Report 23668855 (Version 3)
Quarter: 2024Q4

REPORT INFORMATION
  Report Type: Spontaneous
  Country: FI (occurrence: FI)
  Receive Date: 20240325
  Receipt Date: 20241126
  Transmission Date: 20250114
  Serious: Yes (Hospitalization, Other)
  Sender: PFIZER
  Company Number: FI-PFIZER INC-PV202300205343

PATIENT
  Age: 71 Year
  Sex: Female
  Weight: 59 kg

DRUGS (8)
  1. RIMEGEPANT [Suspect]
     Active Substance: RIMEGEPANT
     Indication: Migraine
     Dosage: 75 MG, ALTERNATE DAY
     Dates: start: 20231204
  2. BISOPROLOL FUMARATE [Concomitant]
     Active Substance: BISOPROLOL FUMARATE
     Indication: Hypertension
     Dosage: 5 MG, 2X/DAY
  3. SYMBICORT [Concomitant]
     Active Substance: BUDESONIDE\FORMOTEROL FUMARATE DIHYDRATE
     Indication: Asthma
     Dosage: (1-2), 2X/DAY
  4. ZOLPIDEM TARTRATE [Concomitant]
     Active Substance: ZOLPIDEM TARTRATE
     Dosage: UNK
  5. PANADOL [Concomitant]
     Active Substance: ACETAMINOPHEN
     Dosage: UNK
  6. CALCIUM CARBONATE\CHOLECALCIFEROL [Concomitant]
     Active Substance: CALCIUM CARBONATE\CHOLECALCIFEROL
     Dosage: UNK
  7. VITAMIN C [Concomitant]
     Active Substance: ASCORBIC ACID
     Dosage: UNK
  8. VITAMIN D NOS [Concomitant]
     Active Substance: CHOLECALCIFEROL\ERGOCALCIFEROL
     Dosage: UNK

REACTIONS (11)
  - Angina pectoris [Recovered/Resolved]
  - Microvascular coronary artery disease [Unknown]
  - Allergic reaction to excipient [Recovering/Resolving]
  - Oral pain [Recovering/Resolving]
  - Glossodynia [Recovering/Resolving]
  - Tongue eruption [Recovering/Resolving]
  - Asthma [Recovering/Resolving]
  - Arthralgia [Recovered/Resolved]
  - Amnesia [Recovered/Resolved]
  - Coronary artery disease [Unknown]
  - Therapeutic response unexpected [Unknown]

NARRATIVE: CASE EVENT DATE: 20231201
